FAERS Safety Report 22396683 (Version 1)
Quarter: 2023Q2

REPORT INFORMATION
  Report Type: Spontaneous
  Country: US (occurrence: US)
  Receive Date: 20230601
  Receipt Date: 20230601
  Transmission Date: 20230721
  Serious: No
  Sender: FDA-Public Use
  Company Number: US-APIL-2313101US

PATIENT
  Age: 59 Year
  Weight: 79.378 kg

DRUGS (1)
  1. RESTASIS [Suspect]
     Active Substance: CYCLOSPORINE
     Indication: Dry eye
     Dosage: 2 GTT, QD
     Route: 047

REACTIONS (10)
  - Visual impairment [Not Recovered/Not Resolved]
  - Eye injury [Not Recovered/Not Resolved]
  - Ocular discomfort [Not Recovered/Not Resolved]
  - Ocular hyperaemia [Not Recovered/Not Resolved]
  - Superficial injury of eye [Recovered/Resolved]
  - Taste disorder [Recovering/Resolving]
  - Eye infection [Not Recovered/Not Resolved]
  - Eye pain [Not Recovered/Not Resolved]
  - Vision blurred [Not Recovered/Not Resolved]
  - Product design issue [Unknown]

NARRATIVE: CASE EVENT DATE: 20221201
